FAERS Safety Report 9371417 (Version 1)
Quarter: 2013Q2

REPORT INFORMATION
  Report Type: Spontaneous
  Country: US (occurrence: None)
  Receive Date: 20130626
  Receipt Date: 20130626
  Transmission Date: 20140414
  Serious: Yes (Other)
  Sender: FDA-Public Use
  Company Number: None

PATIENT
  Sex: Female
  Weight: 48.2 kg

DRUGS (1)
  1. SUBOXONE FILM [Suspect]
     Dosage: 8 MG / 2 MG B.I.D. ORAL
     Route: 048

REACTIONS (1)
  - No adverse event [None]
